FAERS Safety Report 12392943 (Version 3)
Quarter: 2017Q3

REPORT INFORMATION
  Report Type: Spontaneous
  Country: FR (occurrence: FR)
  Receive Date: 20160523
  Receipt Date: 20170717
  Transmission Date: 20171127
  Serious: Yes (Hospitalization, Other)
  Sender: FDA-Public Use
  Company Number: FR-SA-2016SA095413

PATIENT
  Age: 16 Year
  Sex: Female
  Weight: 67 kg

DRUGS (2)
  1. MYOZYME [Suspect]
     Active Substance: ALGLUCOSIDASE ALFA
     Indication: GLYCOGEN STORAGE DISEASE TYPE II
     Dosage: DOSE: 26 BOTTLES
     Route: 041
     Dates: start: 20120321
  2. KEPPRA [Concomitant]
     Active Substance: LEVETIRACETAM
     Dates: start: 2012

REACTIONS (5)
  - Central venous catheterisation [Unknown]
  - Chest pain [Recovered/Resolved]
  - Pleural effusion [Recovered/Resolved]
  - Pneumonia pneumococcal [Recovered/Resolved]
  - Pyrexia [Recovered/Resolved]

NARRATIVE: CASE EVENT DATE: 201601
